FAERS Safety Report 4851360-9 (Version None)
Quarter: 2005Q4

REPORT INFORMATION
  Report Type: 
  Country: None (occurrence: None)
  Receive Date: 20051212
  Receipt Date: 20051130
  Transmission Date: 20060501
  Serious: Yes (Hospitalization)
  Sender: FDA-Public Use
  Company Number: PHBS2005JP17833

PATIENT
  Sex: Male

DRUGS (1)
  1. RITALIN [Suspect]
     Indication: SOMNOLENCE
     Dosage: UNK, UNK
     Route: 065
     Dates: start: 20050501

REACTIONS (1)
  - HYPOGLYCAEMIA [None]
